FAERS Safety Report 19114196 (Version 1)
Quarter: 2021Q2

REPORT INFORMATION
  Report Type: Spontaneous
  Country: US (occurrence: US)
  Receive Date: 20210408
  Receipt Date: 20210408
  Transmission Date: 20210717
  Serious: No
  Sender: FDA-Public Use
  Company Number: US-GLAXOSMITHKLINE-USCH2021018139

PATIENT
  Sex: Male

DRUGS (1)
  1. EQUATE NICOTINE [Suspect]
     Active Substance: NICOTINE
     Indication: PRODUCT USED FOR UNKNOWN INDICATION

REACTIONS (4)
  - Lip pruritus [Unknown]
  - Hypersensitivity [Recovering/Resolving]
  - Hypoaesthesia oral [Unknown]
  - Oral pruritus [Unknown]
